FAERS Safety Report 5834002-5 (Version None)
Quarter: 2008Q3

REPORT INFORMATION
  Report Type: 
  Country: None (occurrence: None)
  Receive Date: 20080804
  Receipt Date: 20080804
  Transmission Date: 20090109
  Serious: No
  Sender: FDA-Public Use
  Company Number: None

PATIENT
  Sex: Male
  Weight: 74.3899 kg

DRUGS (1)
  1. BISACODYL SUPPOSITORIES, 10 MG [Suspect]
     Dates: start: 20080426, end: 20080501

REACTIONS (1)
  - DRUG INEFFECTIVE [None]
